FAERS Safety Report 10034791 (Version 4)
Quarter: 2014Q3

REPORT INFORMATION
  Report Type: Report from Study
  Country: CN (occurrence: CN)
  Receive Date: 20140325
  Receipt Date: 20140901
  Transmission Date: 20150326
  Serious: Yes (Hospitalization, Other)
  Sender: FDA-Public Use
  Company Number: CN-UCBSA-114924

PATIENT
  Age: 20 Year
  Sex: Male
  Weight: 45 kg

DRUGS (6)
  1. LACOSAMIDE EP [Suspect]
     Active Substance: LACOSAMIDE
     Dosage: 150 MG, 2X/DAY (BID)
     Route: 048
     Dates: start: 20130625, end: 20130724
  2. LACOSAMIDE EP [Suspect]
     Active Substance: LACOSAMIDE
     Dosage: 100 MG, 2X/DAY (BID)
     Route: 048
     Dates: start: 20130724, end: 20140210
  3. CARBAMAZEPINE. [Concomitant]
     Active Substance: CARBAMAZEPINE
     Indication: EPILEPSY
     Dosage: .1 G, 4X/DAY (QID)
     Route: 048
     Dates: start: 20120730
  4. TOPIRAMATE. [Concomitant]
     Active Substance: TOPIRAMATE
     Indication: EPILEPSY
     Dosage: 25 MG, 3X/DAY (TID)
     Route: 048
     Dates: start: 20120730
  5. LACOSAMIDE EP [Suspect]
     Active Substance: LACOSAMIDE
     Indication: EPILEPSY
     Dosage: 150 MG, 2X/DAY (BID)
     Route: 048
     Dates: start: 20140210
  6. LACOSAMIDE EP [Suspect]
     Active Substance: LACOSAMIDE
     Dosage: 100 MG, 2X/DAY (BID)
     Route: 048
     Dates: start: 20130527, end: 20130625

REACTIONS (2)
  - Status epilepticus [Recovered/Resolved]
  - Upper respiratory tract infection [None]

NARRATIVE: CASE EVENT DATE: 20140314
